FAERS Safety Report 6063643-8 (Version None)
Quarter: 2009Q1

REPORT INFORMATION
  Report Type: 
  Country: None (occurrence: None)
  Receive Date: 20090129
  Receipt Date: 20090121
  Transmission Date: 20090719
  Serious: No
  Sender: FDA-Public Use
  Company Number: 20096124

PATIENT
  Age: 12 Year
  Sex: Female

DRUGS (1)
  1. LIORESAL [Suspect]
     Indication: MUSCLE SPASTICITY
     Dosage: 244.0 MCG, DAILY, INTRATHECAL
     Route: 037

REACTIONS (2)
  - CATHETER SITE SWELLING [None]
  - MUSCLE SPASTICITY [None]
